FAERS Safety Report 13568082 (Version 2)
Quarter: 2017Q2

REPORT INFORMATION
  Report Type: Spontaneous
  Country: JP (occurrence: JP)
  Receive Date: 20170522
  Receipt Date: 20170609
  Transmission Date: 20170830
  Serious: Yes (Hospitalization)
  Sender: FDA-Public Use
  Company Number: JP-TEVA-2017-JP-001388J

PATIENT
  Age: 79 Year
  Sex: Male

DRUGS (2)
  1. PREDNISOLONE TABLETS 5MG. [Suspect]
     Active Substance: PREDNISOLONE
     Indication: GLOMERULONEPHRITIS
     Dosage: 15 MILLIGRAM DAILY;
     Route: 048
     Dates: start: 2010
  2. CYCLOPHOSPHAMIDE. [Concomitant]
     Active Substance: CYCLOPHOSPHAMIDE
     Indication: GLOMERULONEPHRITIS
     Dosage: 50 MILLIGRAM DAILY;
     Route: 048
     Dates: start: 2010

REACTIONS (2)
  - Tendon rupture [Unknown]
  - Impaired healing [Unknown]

NARRATIVE: CASE EVENT DATE: 201507
